FAERS Safety Report 8037697-3 (Version None)
Quarter: 2012Q1

REPORT INFORMATION
  Report Type: 
  Country: None (occurrence: None)
  Receive Date: 20120105
  Receipt Date: 20111226
  Transmission Date: 20120608
  Serious: Yes (Hospitalization)
  Sender: FDA-Public Use
  Company Number: B0772684A

PATIENT
  Age: 51 Year
  Sex: Female
  Weight: 147.4 kg

DRUGS (10)
  1. ATAZANAVIR [Concomitant]
  2. AMLODIPINE [Concomitant]
  3. ATORVASTATIN CALCIUM [Concomitant]
  4. VALACYCLOVIR HYDROCHLORIDE [Concomitant]
  5. COTRIM [Concomitant]
  6. DIDANOSINE [Concomitant]
  7. LAMIVUDINE(PEPFAR) [Concomitant]
  8. ACYCLOVIR [Suspect]
     Indication: HERPES ZOSTER
     Dosage: 800 MG/ INTRAVENOUS
     Route: 042
  9. FOSCARNET SODIUM [Concomitant]
  10. ZIDOVUDINE [Concomitant]

REACTIONS (13)
  - BLOOD POTASSIUM INCREASED [None]
  - BLOOD SODIUM DECREASED [None]
  - BLOOD CHLORIDE DECREASED [None]
  - ANAEMIA [None]
  - BLOOD CREATININE INCREASED [None]
  - CONFUSIONAL STATE [None]
  - ANGIOEDEMA [None]
  - ENCEPHALITIS HERPES [None]
  - RESPIRATORY DISTRESS [None]
  - MENTAL STATUS CHANGES [None]
  - AGITATION [None]
  - UNRESPONSIVE TO STIMULI [None]
  - BLOOD UREA INCREASED [None]
